FAERS Safety Report 22717505 (Version 5)
Quarter: 2023Q4

REPORT INFORMATION
  Report Type: Spontaneous
  Country: GB (occurrence: GB)
  Receive Date: 20230718
  Receipt Date: 20231211
  Transmission Date: 20240109
  Serious: Yes (Hospitalization, Other)
  Sender: FDA-Public Use
  Company Number: GB-MYLANLABS-2023M1075121

PATIENT
  Age: 50 Year
  Sex: Male

DRUGS (2)
  1. CLOZARIL [Suspect]
     Active Substance: CLOZAPINE
     Indication: Schizophrenia
     Dosage: 200 MILLIGRAM, QD (NOCTE)
     Route: 048
     Dates: start: 20220908, end: 20230620
  2. MORPHINE [Concomitant]
     Active Substance: MORPHINE
     Dosage: UNK
     Route: 065

REACTIONS (11)
  - Suicide attempt [Unknown]
  - Injury [Unknown]
  - Osteomyelitis [Unknown]
  - Treatment noncompliance [Unknown]
  - Fall [Unknown]
  - Mental disorder [Unknown]
  - Haemoglobin increased [Not Recovered/Not Resolved]
  - White blood cell count increased [Recovered/Resolved]
  - Haematocrit decreased [Not Recovered/Not Resolved]
  - Red blood cell count decreased [Unknown]
  - Platelet count increased [Not Recovered/Not Resolved]

NARRATIVE: CASE EVENT DATE: 20230627
